FAERS Safety Report 7420087-1 (Version None)
Quarter: 2011Q2

REPORT INFORMATION
  Report Type: 
  Country: None (occurrence: None)
  Receive Date: 20110418
  Receipt Date: 20110407
  Transmission Date: 20111010
  Serious: No
  Sender: FDA-Public Use
  Company Number: US-BIOGENIDEC-2011BI013474

PATIENT
  Sex: Female

DRUGS (2)
  1. TYSABRI [Suspect]
     Indication: MULTIPLE SCLEROSIS
     Route: 042
     Dates: start: 20090415
  2. TYSABRI [Suspect]
     Route: 042
     Dates: start: 20070530, end: 20080305

REACTIONS (5)
  - PARAESTHESIA [None]
  - FALL [None]
  - SPEECH DISORDER [None]
  - DIZZINESS [None]
  - PAIN [None]
